FAERS Safety Report 4718314-4 (Version None)
Quarter: 2005Q3

REPORT INFORMATION
  Report Type: 
  Country: None (occurrence: None)
  Receive Date: 20050720
  Receipt Date: 20050706
  Transmission Date: 20060218
  Serious: Yes (Death)
  Sender: FDA-Public Use
  Company Number: SEWYE803306JUL05

PATIENT
  Sex: Female

DRUGS (7)
  1. ENBREL [Suspect]
     Indication: RHEUMATOID ARTHRITIS
     Route: 058
     Dates: start: 19991201, end: 20050301
  2. ZOPICLONE [Concomitant]
     Dosage: DOSE REGIMEN WAS NOT SPECIFIED
     Route: 048
     Dates: end: 20050521
  3. CARVEDILOL [Concomitant]
     Dosage: DOSE REGIMEN WAS NOT SPECIFIED
     Route: 048
     Dates: end: 20050521
  4. PARACETAMOL WITH CODEINE [Concomitant]
     Dosage: DOSE REGIMEN WAS NOT SPECIFIED
     Dates: end: 20050521
  5. RANITIDINE [Concomitant]
     Dosage: DOSE REGIMEN WAS NOT SPECIFIED
     Route: 048
     Dates: end: 20050521
  6. AMARYL [Concomitant]
     Dosage: DOSE REGIMEN WAS NOT SPECIFIED
     Route: 048
     Dates: end: 20050521
  7. METHOTREXATE [Concomitant]
     Dates: start: 19980101, end: 20050521

REACTIONS (4)
  - ADENOCARCINOMA [None]
  - METASTASES TO LIVER [None]
  - METASTASES TO LUNG [None]
  - METASTASIS [None]
